FAERS Safety Report 7907539-2 (Version None)
Quarter: 2011Q4

REPORT INFORMATION
  Report Type: 
  Country: None (occurrence: None)
  Receive Date: 20111110
  Receipt Date: 20111102
  Transmission Date: 20120403
  Serious: Yes (Hospitalization, Other)
  Sender: FDA-Public Use
  Company Number: PHEH2008US03987

PATIENT
  Sex: Female
  Weight: 78.005 kg

DRUGS (55)
  1. ZOMETA [Suspect]
     Indication: METASTASES TO BONE
     Dosage: 4 MG, QMO
     Route: 042
     Dates: start: 19970101
  2. ZOMETA [Suspect]
     Indication: BREAST CANCER
  3. TOPROL-XL [Concomitant]
  4. PROTONIX [Concomitant]
     Route: 048
  5. KETOCONAZOLE [Concomitant]
  6. VENLAFAXINE [Concomitant]
  7. AMLODIPINE [Concomitant]
  8. PERCOCET [Concomitant]
     Route: 048
  9. AUGMENTIN '125' [Concomitant]
  10. LITHIUM [Suspect]
     Indication: BIPOLAR I DISORDER
  11. MIDAZOLAM [Concomitant]
     Dosage: 2.5 MG, BID
  12. ANASTRAZOLE [Concomitant]
  13. TORADOL [Concomitant]
  14. ZOFRAN [Concomitant]
  15. LEVAQUIN [Concomitant]
  16. LAMICTAL [Concomitant]
  17. COLACE [Concomitant]
     Dosage: 100 MG, BID
     Route: 048
  18. ATIVAN [Concomitant]
  19. AMBIEN [Concomitant]
     Route: 048
  20. DEMEROL [Concomitant]
     Dosage: 12.5 MG, BID
     Route: 042
  21. AMITRIPTYLINE HCL [Concomitant]
  22. RESTORIL [Suspect]
     Dosage: 21 RESTORIL TABLETS IN A PERIOD OF THREE DAYS
  23. ONDANSETRON [Concomitant]
     Dosage: 4 MG, UNK
  24. ARIPIPRAZOLE [Concomitant]
     Dosage: 10 MG, QD
  25. HEPARIN SODIUM [Concomitant]
  26. EPHEDRINE SUL CAP [Concomitant]
  27. NALOXONE [Concomitant]
     Route: 042
  28. DURAGESIC-100 [Concomitant]
     Dosage: 100 UG, Q72H
  29. XANAX [Concomitant]
  30. REGLAN [Concomitant]
  31. VANCOMYCIN [Concomitant]
  32. ACETAMINOPHEN [Concomitant]
     Route: 048
  33. ANCEF [Concomitant]
     Route: 042
  34. NALBUPHINE [Concomitant]
  35. ACIPHEX [Concomitant]
  36. CARAFATE [Concomitant]
  37. PEPCID [Concomitant]
  38. VICODIN [Concomitant]
  39. BIAXIN [Concomitant]
  40. AREDIA [Suspect]
     Dosage: 90 MG, UNK
  41. PHENERGAN [Concomitant]
  42. MORPHINE [Concomitant]
  43. EFFEXOR [Concomitant]
     Dosage: 37.5 MG, TID
     Route: 048
  44. OXYCONTIN [Concomitant]
     Dosage: 20 MG, Q12H
  45. REPLIVA [Concomitant]
  46. LISINOPRIL [Concomitant]
  47. ARIMIDEX [Concomitant]
  48. LAMOTRIGINE [Concomitant]
  49. TAMOXIFEN CITRATE [Suspect]
  50. FENTANYL [Concomitant]
  51. CEFAZOLIN [Concomitant]
     Dosage: 1 G, Q8H
  52. MAALOX                                  /USA/ [Concomitant]
  53. ALBUTEROL [Concomitant]
  54. DILAUDID [Concomitant]
     Route: 042
  55. METOPROLOL [Concomitant]

REACTIONS (80)
  - DYSTONIA [None]
  - METASTASES TO SPINE [None]
  - INSOMNIA [None]
  - OSTEOARTHRITIS [None]
  - DRY MOUTH [None]
  - EXPOSED BONE IN JAW [None]
  - DYSPHAGIA [None]
  - RENAL FAILURE ACUTE [None]
  - INTERVERTEBRAL DISC DEGENERATION [None]
  - ODYNOPHAGIA [None]
  - GASTRITIS [None]
  - OESOPHAGITIS [None]
  - DECREASED INTEREST [None]
  - ARTHROPATHY [None]
  - TENDONITIS [None]
  - VOMITING [None]
  - HYPOKALAEMIA [None]
  - PEPTIC ULCER [None]
  - MENOPAUSAL SYMPTOMS [None]
  - INTERVERTEBRAL DISC PROTRUSION [None]
  - SPLENIC LESION [None]
  - PLEURAL EFFUSION [None]
  - PLEURAL FIBROSIS [None]
  - UTERINE HAEMORRHAGE [None]
  - HYPOPHAGIA [None]
  - GENERAL PHYSICAL HEALTH DETERIORATION [None]
  - ANXIETY [None]
  - BACK PAIN [None]
  - DYSPHONIA [None]
  - ALVEOLAR OSTEITIS [None]
  - GINGIVAL PAIN [None]
  - OSTEONECROSIS OF JAW [None]
  - BREAST CANCER RECURRENT [None]
  - ULCER [None]
  - DIAPHRAGMATIC HERNIA [None]
  - PULMONARY FIBROSIS [None]
  - ANAEMIA [None]
  - URINARY TRACT INFECTION [None]
  - TOOTH ABSCESS [None]
  - APPENDICITIS [None]
  - SPINAL OSTEOARTHRITIS [None]
  - CELLULITIS [None]
  - LOOSE TOOTH [None]
  - PELVIC PAIN [None]
  - DIARRHOEA [None]
  - NAUSEA [None]
  - BONE PAIN [None]
  - PNEUMOTHORAX [None]
  - HAEMORRHOIDS [None]
  - TREMOR [None]
  - ACQUIRED DIAPHRAGMATIC EVENTRATION [None]
  - OVARIAN CYST [None]
  - WEIGHT DECREASED [None]
  - DEPRESSED MOOD [None]
  - SINUS TACHYCARDIA [None]
  - HYPERTENSION [None]
  - LUNG NEOPLASM [None]
  - OVERDOSE [None]
  - HOT FLUSH [None]
  - ASTHMA [None]
  - ESSENTIAL HYPERTENSION [None]
  - GINGIVAL INFECTION [None]
  - PAIN [None]
  - CHEST PAIN [None]
  - CONSTIPATION [None]
  - SNORING [None]
  - CONFUSIONAL STATE [None]
  - FALL [None]
  - OSTEOMYELITIS [None]
  - FACIAL BONES FRACTURE [None]
  - SKIN DISORDER [None]
  - PAIN IN EXTREMITY [None]
  - GASTROOESOPHAGEAL REFLUX DISEASE [None]
  - ABDOMINAL PAIN [None]
  - HISTOPLASMOSIS [None]
  - METASTASES TO BONE [None]
  - MENORRHAGIA [None]
  - BIPOLAR I DISORDER [None]
  - TOXICITY TO VARIOUS AGENTS [None]
  - PERIODONTITIS [None]
